FAERS Safety Report 6735583-X (Version None)
Quarter: 2010Q2

REPORT INFORMATION
  Report Type: 
  Country: None (occurrence: None)
  Receive Date: 20100521
  Receipt Date: 20100511
  Transmission Date: 20101027
  Serious: Yes (Hospitalization)
  Sender: FDA-Public Use
  Company Number: FR-WYE-H15125810

PATIENT
  Sex: Female

DRUGS (7)
  1. INIPOMP [Suspect]
     Route: 048
     Dates: start: 20100419, end: 20100429
  2. TAVANIC [Suspect]
     Indication: HELICOBACTER INFECTION
     Route: 048
     Dates: start: 20100419, end: 20100428
  3. ZOLMITRIPTAN [Concomitant]
     Dosage: UNKNOWN
  4. ALDACTONE [Concomitant]
     Dosage: UNKNOWN
  5. AVLOCARDYL [Concomitant]
     Dosage: UNKNOWN
  6. ANSATIPIN [Suspect]
     Indication: HELICOBACTER INFECTION
     Route: 048
     Dates: start: 20100419, end: 20100428
  7. LEVOTHYROXINE SODIUM [Concomitant]
     Dosage: UNKNOWN

REACTIONS (8)
  - CONFUSIONAL STATE [None]
  - DYSGEUSIA [None]
  - HEADACHE [None]
  - LYMPHOCYTE COUNT DECREASED [None]
  - NEUTROPENIA [None]
  - PYREXIA [None]
  - TREMOR [None]
  - WHITE BLOOD CELL COUNT DECREASED [None]
